FAERS Safety Report 8766394 (Version 2)
Quarter: 2012Q4

REPORT INFORMATION
  Report Type: 
  Country: BR (occurrence: BR)
  Receive Date: 20120904
  Receipt Date: 20120924
  Transmission Date: 20130627
  Serious: Yes (Hospitalization, Other)
  Sender: FDA-Public Use
  Company Number: BR-JNJFOC-20120814934

PATIENT
  Sex: Male
  Weight: 83 kg

DRUGS (1)
  1. TRAMAL [Suspect]
     Indication: SPINAL PAIN
     Dosage: 50 and 100 mg
     Route: 048
     Dates: start: 2006, end: 2009

REACTIONS (3)
  - Spinal pain [Unknown]
  - Intentional overdose [Unknown]
  - Drug ineffective [Unknown]
